FAERS Safety Report 23638457 (Version 15)
Quarter: 2025Q4

REPORT INFORMATION
  Report Type: Spontaneous
  Country: EU (occurrence: EU)
  Receive Date: 20240315
  Receipt Date: 20251023
  Transmission Date: 20260118
  Serious: Yes (Death, Life-Threatening, Hospitalization, Other)
  Sender: LUNDBECK
  Company Number: EU-ELERTE-202400010

PATIENT
  Age: 34 Year
  Sex: Male
  Weight: 79 kg

DRUGS (23)
  1. CLOBAZAM [Suspect]
     Active Substance: CLOBAZAM
     Indication: Product used for unknown indication
     Dosage: 10 MG
     Route: 048
     Dates: start: 20160824, end: 20160908
  2. MORPHINE HYDROCHLORIDE [Suspect]
     Active Substance: MORPHINE HYDROCHLORIDE
     Indication: Back pain
     Dosage: UNK
     Dates: start: 2016, end: 2016
  3. IBUPROFEN [Suspect]
     Active Substance: IBUPROFEN
     Indication: Back pain
     Dosage: 1 DF
     Route: 048
     Dates: start: 2016, end: 2016
  4. THIOCOLCHICOSIDE [Suspect]
     Active Substance: THIOCOLCHICOSIDE
     Indication: Back pain
     Dosage: UNK
     Route: 048
     Dates: start: 20160903, end: 2016
  5. ARTEMETHER [Suspect]
     Active Substance: ARTEMETHER
     Indication: Psychiatric symptom
     Dosage: 5 MG
     Route: 048
     Dates: start: 20160810, end: 20160908
  6. ARTEMETHER [Suspect]
     Active Substance: ARTEMETHER
     Indication: Depression
  7. PAROXETINE HYDROCHLORIDE [Suspect]
     Active Substance: PAROXETINE HYDROCHLORIDE
     Indication: Back pain
     Dosage: UNK
     Route: 048
     Dates: start: 20160829, end: 20160908
  8. FENTANYL [Suspect]
     Active Substance: FENTANYL
     Indication: Back pain
     Dosage: 12 UG
     Route: 062
     Dates: start: 20160726, end: 2016
  9. NIFUROXAZIDE [Suspect]
     Active Substance: NIFUROXAZIDE
     Indication: Product used for unknown indication
     Dosage: UNK
     Route: 048
     Dates: start: 2016
  10. MEPHENESIN [Suspect]
     Active Substance: MEPHENESIN
     Indication: Product used for unknown indication
     Dosage: UNK
  11. ACETAMINOPHEN [Suspect]
     Active Substance: ACETAMINOPHEN
     Indication: Product used for unknown indication
     Dosage: UNK
  12. NAFRONYL OXALATE [Suspect]
     Active Substance: NAFRONYL OXALATE
     Indication: Product used for unknown indication
     Dosage: UNK
  13. ACETAMINOPHEN\TRAMADOL HYDROCHLORIDE [Suspect]
     Active Substance: ACETAMINOPHEN\TRAMADOL HYDROCHLORIDE
     Indication: Product used for unknown indication
     Dosage: UNK
  14. AMISULPRIDE [Suspect]
     Active Substance: AMISULPRIDE
     Indication: Bipolar disorder
     Dosage: UNKNOWN
     Route: 048
  15. TRAMADOL HYDROCHLORIDE [Suspect]
     Active Substance: TRAMADOL HYDROCHLORIDE
     Indication: Back pain
     Dosage: PRESCRIBED HIM OVER A PERIOD BETWEEN 28- JUL-2016 AND 05-SEP-2016
     Route: 048
     Dates: start: 2016, end: 2016
  16. QUETIAPINE FUMARATE [Suspect]
     Active Substance: QUETIAPINE FUMARATE
     Indication: Product used for unknown indication
     Dosage: UNK
     Route: 048
     Dates: start: 20160830, end: 2016
  17. DIAZEPAM [Suspect]
     Active Substance: DIAZEPAM
     Indication: Product used for unknown indication
     Dosage: 10 MILLIGRAM
     Route: 048
     Dates: start: 20160902, end: 2016
  18. ALPRAZOLAM [Interacting]
     Active Substance: ALPRAZOLAM
     Indication: Psychiatric symptom
     Dosage: UNKNOWN
     Route: 048
  19. ALPRAZOLAM [Interacting]
     Active Substance: ALPRAZOLAM
     Indication: Depression
  20. ZOPICLONE [Suspect]
     Active Substance: ZOPICLONE
     Indication: Psychiatric symptom
     Dosage: UNK
     Route: 048
  21. ZOPICLONE [Suspect]
     Active Substance: ZOPICLONE
     Indication: Depression
  22. ACETAMINOPHEN\CODEINE PHOSPHATE [Suspect]
     Active Substance: ACETAMINOPHEN\CODEINE PHOSPHATE
     Indication: Product used for unknown indication
     Dosage: 500 MG
     Route: 048
     Dates: start: 2016, end: 2016
  23. CLONAZEPAM [Suspect]
     Active Substance: CLONAZEPAM
     Indication: Product used for unknown indication
     Dosage: 10 MG

REACTIONS (28)
  - Cardiomyopathy [Fatal]
  - Myocardial infarction [Fatal]
  - Cholecystitis infective [Fatal]
  - Hepatobiliary disease [Unknown]
  - Hepatic cytolysis [Fatal]
  - Aspiration [Fatal]
  - Intentional self-injury [Fatal]
  - Encephalopathy [Fatal]
  - Labelled drug-drug interaction issue [Fatal]
  - Pancreas infection [Fatal]
  - Hepatitis acute [Fatal]
  - Nephropathy toxic [Unknown]
  - Coma [Fatal]
  - Acute pulmonary oedema [Fatal]
  - Cardiac disorder [Recovered/Resolved]
  - Necrosis [Fatal]
  - Cardio-respiratory arrest [Fatal]
  - Liver injury [Unknown]
  - Arrhythmia [Unknown]
  - Overdose [Fatal]
  - Coronary artery stenosis [Fatal]
  - Accidental poisoning [Fatal]
  - Myocarditis [Fatal]
  - Hepatic failure [Unknown]
  - Respiratory depression [Fatal]
  - Drug abuse [Fatal]
  - Product prescribing issue [Unknown]
  - Prescribed overdose [Unknown]

NARRATIVE: CASE EVENT DATE: 20160101
